FAERS Safety Report 25956364 (Version 1)
Quarter: 2025Q4

REPORT INFORMATION
  Report Type: Spontaneous
  Country: EU (occurrence: EU)
  Receive Date: 20251024
  Receipt Date: 20251024
  Transmission Date: 20260118
  Serious: Yes (Hospitalization)
  Sender: BAXTER
  Company Number: None

PATIENT
  Age: 68 Year
  Sex: Female
  Weight: 64 kg

DRUGS (28)
  1. PROPOFOL [Suspect]
     Active Substance: PROPOFOL
     Indication: Anaesthesia
     Dosage: 150 MG
     Route: 042
     Dates: start: 20250924, end: 20250924
  2. METRONIDAZOLE [Suspect]
     Active Substance: METRONIDAZOLE
     Indication: Antibiotic prophylaxis
     Dosage: 500 MG (SINGLE DOSE)
     Route: 065
     Dates: start: 20250924, end: 20250924
  3. SUGAMMADEX [Suspect]
     Active Substance: SUGAMMADEX
     Indication: Laparotomy
     Dosage: 500 MG
     Route: 042
     Dates: start: 20250924, end: 20250924
  4. CEFTRIAXONE SODIUM [Suspect]
     Active Substance: CEFTRIAXONE SODIUM
     Indication: Antibiotic prophylaxis
     Dosage: 1 G (SINGLE DOSE)
     Route: 065
     Dates: start: 20250924, end: 20250924
  5. CETIRIZINE HYDROCHLORIDE [Suspect]
     Active Substance: CETIRIZINE HYDROCHLORIDE
     Indication: Product used for unknown indication
     Dosage: UNK
     Route: 065
     Dates: start: 20250925
  6. KETAMINE HYDROCHLORIDE [Suspect]
     Active Substance: KETAMINE HYDROCHLORIDE
     Indication: Anaesthesia
     Dosage: 160 MG
     Route: 065
     Dates: start: 20250924, end: 20250924
  7. REMIFENTANIL HYDROCHLORIDE [Suspect]
     Active Substance: REMIFENTANIL HYDROCHLORIDE
     Indication: Anaesthesia
     Dosage: UNKNOWN DOSE
     Route: 042
     Dates: start: 20250924, end: 20250924
  8. LIDOCAINE [Suspect]
     Active Substance: LIDOCAINE
     Indication: Anaesthesia
     Dosage: 500 ML
     Route: 042
     Dates: start: 20250924, end: 20250924
  9. DEXAMETHASONE [Suspect]
     Active Substance: DEXAMETHASONE
     Indication: Product used for unknown indication
     Dosage: 8 MG
     Route: 042
     Dates: start: 20250924, end: 20250924
  10. SODIUM CHLORIDE [Suspect]
     Active Substance: SODIUM CHLORIDE
     Indication: Laparotomy
     Dosage: 500 ML NACL 0.9%
     Route: 042
     Dates: start: 20250924, end: 20250924
  11. PHLOROGLUCINOL [Suspect]
     Active Substance: PHLOROGLUCINOL
     Indication: Laparotomy
     Dosage: 80 MG
     Route: 042
     Dates: start: 20250924, end: 20250924
  12. KETAMINE [Suspect]
     Active Substance: KETAMINE
     Indication: Laparotomy
     Dosage: 20 MG
     Route: 042
     Dates: start: 20250924, end: 20250924
  13. PERFALGAN [Suspect]
     Active Substance: ACETAMINOPHEN
     Indication: Pain
     Dosage: 1 G
     Route: 042
     Dates: start: 20250924, end: 20250924
  14. ROCURONIUM BROMIDE [Suspect]
     Active Substance: ROCURONIUM BROMIDE
     Indication: Anaesthesia
     Dosage: 60 MG
     Route: 042
     Dates: start: 20250924, end: 20250924
  15. KETOPROFEN [Suspect]
     Active Substance: KETOPROFEN
     Indication: Procedural pain
     Dosage: 100 MG
     Route: 042
     Dates: start: 20250924, end: 20250924
  16. NEFOPAM HYDROCHLORIDE [Suspect]
     Active Substance: NEFOPAM HYDROCHLORIDE
     Indication: Procedural pain
     Dosage: 20 MG
     Route: 042
     Dates: start: 20250924, end: 20250924
  17. LACTATED RINGERS SOLUTION [Suspect]
     Active Substance: CALCIUM CHLORIDE\POTASSIUM CHLORIDE\SODIUM CHLORIDE\SODIUM LACTATE
     Indication: Laparotomy
     Dosage: 500 ML
     Route: 042
     Dates: start: 20250924, end: 20250924
  18. RISPERIDONE [Concomitant]
     Active Substance: RISPERIDONE
     Indication: Psychiatric decompensation
     Dosage: 0.5 MG, QD (0.5 MG ORALLY DISPERSIBLE TABLET) IN THE EVENING
     Route: 048
  19. FUROSEMIDE [Concomitant]
     Active Substance: FUROSEMIDE
     Indication: Product used for unknown indication
     Dosage: 20 MG, QD (IN THE MORNING)
     Route: 048
  20. ESCITALOPRAM [Concomitant]
     Active Substance: ESCITALOPRAM OXALATE
     Indication: Depression
     Dosage: 5 MG, QD
     Route: 048
  21. TROPATEPINE HYDROCHLORIDE [Concomitant]
     Active Substance: TROPATEPINE HYDROCHLORIDE
     Indication: Neuroleptic-induced deficit syndrome
     Dosage: 10 MG, QD (10MG-0-0)
     Route: 048
  22. OLANZAPINE [Concomitant]
     Active Substance: OLANZAPINE
     Indication: Mania
     Dosage: 20 MG, QD (20MG-0-0)
     Route: 048
  23. NICOTINE [Concomitant]
     Active Substance: NICOTINE
     Indication: Ex-tobacco user
     Dosage: 1.5 MG (1.5?MG, 1 TO 10 TIMES PER DAY)
     Route: 048
  24. POLYETHYLENE GLYCOL 4000 [Concomitant]
     Active Substance: POLYETHYLENE GLYCOL 4000
     Indication: Constipation
     Dosage: 30 G, QD (10G-10G-10G)
     Route: 048
  25. SKENAN [Concomitant]
     Active Substance: MORPHINE SULFATE
     Indication: Pain
     Dosage: 10 MG (10MG-0-10MG) SKENAN L.P. 10 MG PROLONGED-RELEASE MICROGRANULES IN CAPSULES
     Route: 048
  26. MORPHINE SULFATE [Concomitant]
     Active Substance: MORPHINE SULFATE
     Indication: Pain
     Dosage: 5 MG (MAXIMUM 5 PER DAY IF NEEDED) ACTISKENAN 5 MG ORALLY DISPERSIBLE TABLET
     Route: 048
  27. LIDOCAINE [Concomitant]
     Active Substance: LIDOCAINE
     Indication: Pain
     Dosage: 1 DOSAGE FORM (VERSATIS 5% MEDICATED PLASTER)
     Route: 003
  28. ACETAMINOPHEN [Concomitant]
     Active Substance: ACETAMINOPHEN
     Indication: Pain
     Dosage: IF NEEDED, 1?G IN THE MORNING, NOON, AND EVENING
     Route: 048

REACTIONS (1)
  - Skin reaction [Recovered/Resolved]

NARRATIVE: CASE EVENT DATE: 20250925
